FAERS Safety Report 4272650-7 (Version None)
Quarter: 2004Q1

REPORT INFORMATION
  Report Type: 
  Country: None (occurrence: None)
  Receive Date: 20040115
  Receipt Date: 20040115
  Transmission Date: 20041129
  Serious: No
  Sender: FDA-Public Use
  Company Number: None

PATIENT
  Sex: Female
  Weight: 65.7716 kg

DRUGS (4)
  1. ZYPREXA [Suspect]
     Indication: AGITATION
     Dosage: 2.5 MG 1 QD
  2. ZYPREXA [Suspect]
     Indication: HEADACHE
     Dosage: 2.5 MG 1 QD
  3. ZYPREXA [Suspect]
     Indication: SLEEP DISORDER
     Dosage: 2.5 MG 1 QD
  4. EFFEXOR XR [Concomitant]

REACTIONS (5)
  - DISORIENTATION [None]
  - EXTRAPYRAMIDAL DISORDER [None]
  - SALIVARY HYPERSECRETION [None]
  - SLEEP TALKING [None]
  - STARING [None]
